FAERS Safety Report 19925074 (Version 1)
Quarter: 2021Q4

REPORT INFORMATION
  Report Type: Spontaneous
  Country: DE (occurrence: DE)
  Receive Date: 20211006
  Receipt Date: 20211006
  Transmission Date: 20220303
  Serious: Yes (Hospitalization, Other)
  Sender: FDA-Public Use
  Company Number: DE-NOVARTISPH-NVSC2021DE223691

PATIENT
  Age: 58 Year
  Sex: Male

DRUGS (17)
  1. FLUDARABINE [Suspect]
     Active Substance: FLUDARABINE PHOSPHATE
     Indication: Graft versus host disease
     Dosage: UNK
     Route: 065
  2. TACROLIMUS [Suspect]
     Active Substance: TACROLIMUS
     Indication: Graft versus host disease
     Dosage: UNK
     Route: 065
  3. FLUOROURACIL [Suspect]
     Active Substance: FLUOROURACIL
     Indication: Graft versus host disease
     Dosage: UNK
     Route: 065
  4. MITOMYCIN [Suspect]
     Active Substance: MITOMYCIN
     Indication: Graft versus host disease
     Dosage: UNK
     Route: 065
  5. PREDNISOLONE ACETATE [Suspect]
     Active Substance: PREDNISOLONE ACETATE
     Indication: Chronic graft versus host disease
     Dosage: 1 MG/KG, ONCE/SINGLE
     Route: 065
  6. PREDNISOLONE ACETATE [Suspect]
     Active Substance: PREDNISOLONE ACETATE
     Dosage: 0.5 MG/KG
     Route: 065
  7. PREDNISOLONE ACETATE [Suspect]
     Active Substance: PREDNISOLONE ACETATE
     Dosage: 0.2 MG/KG
     Route: 065
  8. MONTELUKAST [Suspect]
     Active Substance: MONTELUKAST SODIUM
     Indication: Chronic graft versus host disease
     Dosage: UNK
     Route: 065
  9. AZITHROMYCIN ANHYDROUS [Suspect]
     Active Substance: AZITHROMYCIN ANHYDROUS
     Indication: Chronic graft versus host disease
     Dosage: UNK
     Route: 065
  10. COTRIMOXAZOLE [Suspect]
     Active Substance: SULFAMETHOXAZOLE\TRIMETHOPRIM
     Indication: Chronic graft versus host disease
     Dosage: UNK
     Route: 065
  11. ACYCLOVIR [Suspect]
     Active Substance: ACYCLOVIR
     Indication: Chronic graft versus host disease
     Dosage: UNK
     Route: 065
  12. POSACONAZOLE [Suspect]
     Active Substance: POSACONAZOLE
     Indication: Chronic graft versus host disease
     Dosage: UNK
     Route: 065
  13. MOXIFLOXACIN [Suspect]
     Active Substance: MOXIFLOXACIN
     Indication: Chronic graft versus host disease
     Dosage: UNK
     Route: 065
  14. RUXOLITINIB [Suspect]
     Active Substance: RUXOLITINIB
     Indication: Graft versus host disease
     Dosage: 20 MG (2 X 10 MG/DAY)
     Route: 065
  15. CYCLOSPORINE [Suspect]
     Active Substance: CYCLOSPORINE
     Indication: Product used for unknown indication
     Dosage: UNK
     Route: 065
  16. METHOTREXATE [Suspect]
     Active Substance: METHOTREXATE
     Indication: Graft versus host disease
     Dosage: UNK
     Route: 065
  17. THIOTEPA [Suspect]
     Active Substance: THIOTEPA
     Indication: Graft versus host disease
     Dosage: UNK
     Route: 065

REACTIONS (15)
  - Steroid diabetes [Unknown]
  - Osteoporosis [Unknown]
  - Cataract [Unknown]
  - Bacterial infection [Unknown]
  - Acute myeloid leukaemia recurrent [Unknown]
  - Immunosuppression [Unknown]
  - Renal failure [Unknown]
  - Bronchiolitis obliterans syndrome [Unknown]
  - Chimerism [Unknown]
  - NPM1 gene mutation [Unknown]
  - Respiratory syncytial virus infection [Unknown]
  - Obstructive airways disorder [Unknown]
  - Blood immunoglobulin G decreased [Unknown]
  - Peripheral venous disease [Unknown]
  - Drug ineffective [Unknown]
